FAERS Safety Report 7738519-8 (Version None)
Quarter: 2011Q3

REPORT INFORMATION
  Report Type: 
  Country: None (occurrence: None)
  Receive Date: 20110908
  Receipt Date: 20110829
  Transmission Date: 20111222
  Serious: Yes (Hospitalization, Other)
  Sender: FDA-Public Use
  Company Number: US-ELI_LILLY_AND_COMPANY-US201109000339

PATIENT
  Age: 16 Year
  Sex: Female

DRUGS (2)
  1. ZYPREXA [Suspect]
     Dosage: UNK, UNKNOWN
     Dates: start: 20050101, end: 20051201
  2. ZYPREXA [Suspect]
     Indication: BIPOLAR DISORDER
     Dosage: UNK UNK, UNKNOWN
     Dates: start: 20050901, end: 20051001

REACTIONS (9)
  - SENSORY LOSS [None]
  - DRUG WITHDRAWAL SYNDROME [None]
  - COGNITIVE DISORDER [None]
  - CATATONIA [None]
  - FORMICATION [None]
  - ABNORMAL BEHAVIOUR [None]
  - HYPERSOMNIA [None]
  - INSOMNIA [None]
  - PARANOIA [None]
